FAERS Safety Report 7677871-9 (Version None)
Quarter: 2011Q3

REPORT INFORMATION
  Report Type: 
  Country: None (occurrence: None)
  Receive Date: 20110811
  Receipt Date: 20110808
  Transmission Date: 20111222
  Serious: Yes (Hospitalization)
  Sender: FDA-Public Use
  Company Number: FR-MERCK-1108FRA00051

PATIENT
  Age: 77 Year
  Sex: Male
  Weight: 84 kg

DRUGS (6)
  1. METFORMIN HYDROCHLORIDE [Concomitant]
     Indication: TYPE 2 DIABETES MELLITUS
     Route: 048
     Dates: start: 20100720, end: 20110317
  2. JANUMET [Suspect]
     Indication: TYPE 2 DIABETES MELLITUS
     Route: 048
     Dates: start: 20100720, end: 20110610
  3. GLICLAZIDE [Concomitant]
     Route: 048
     Dates: start: 20110317
  4. GLICLAZIDE [Concomitant]
     Indication: TYPE 2 DIABETES MELLITUS
     Route: 048
     Dates: start: 20100720, end: 20101022
  5. GLICLAZIDE [Concomitant]
     Route: 048
     Dates: start: 20101022, end: 20110111
  6. GLICLAZIDE [Concomitant]
     Route: 048
     Dates: start: 20110111, end: 20110317

REACTIONS (1)
  - RENAL FAILURE [None]
